FAERS Safety Report 13998276 (Version 1)
Quarter: 2017Q3

REPORT INFORMATION
  Report Type: Spontaneous
  Country: US (occurrence: US)
  Receive Date: 20170921
  Receipt Date: 20170921
  Transmission Date: 20171128
  Serious: Yes (Other)
  Sender: FDA-Public Use
  Company Number: US-ALLERGAN-1675700US

PATIENT
  Age: 52 Year
  Sex: Female

DRUGS (4)
  1. PRED FORTE [Suspect]
     Active Substance: PREDNISOLONE ACETATE
     Dosage: 1 GTT, UNK
     Route: 047
  2. DUREZOL [Concomitant]
     Active Substance: DIFLUPREDNATE
     Indication: UVEITIS
     Route: 047
  3. PRED FORTE [Suspect]
     Active Substance: PREDNISOLONE ACETATE
     Dosage: 1 GTT, Q4HR
     Route: 047
  4. PRED FORTE [Suspect]
     Active Substance: PREDNISOLONE ACETATE
     Indication: UVEITIS
     Dosage: 2 GTT, Q2HR
     Route: 047

REACTIONS (6)
  - Retinal detachment [Recovered/Resolved]
  - Inappropriate schedule of drug administration [Unknown]
  - Eye pain [Recovered/Resolved]
  - Visual impairment [Not Recovered/Not Resolved]
  - Retinal detachment [Not Recovered/Not Resolved]
  - Aphakia [Unknown]

NARRATIVE: CASE EVENT DATE: 1999
